FAERS Safety Report 7015108-4 (Version None)
Quarter: 2010Q3

REPORT INFORMATION
  Report Type: 
  Country: None (occurrence: None)
  Receive Date: 20100927
  Receipt Date: 20100604
  Transmission Date: 20110219
  Serious: No
  Sender: FDA-Public Use
  Company Number: US-ASTRAZENECA-2010SE26010

PATIENT
  Sex: Female

DRUGS (2)
  1. ARIMIDEX [Suspect]
     Indication: BREAST CANCER STAGE I
     Route: 048
     Dates: start: 20080101
  2. ARIMIDEX [Suspect]
     Route: 048
     Dates: start: 20100101

REACTIONS (7)
  - ARTHRALGIA [None]
  - DIZZINESS [None]
  - DRUG DOSE OMISSION [None]
  - EAR DISORDER [None]
  - FATIGUE [None]
  - GAIT DISTURBANCE [None]
  - PAIN [None]
